FAERS Safety Report 16348841 (Version 2)
Quarter: 2019Q2

REPORT INFORMATION
  Report Type: Spontaneous
  Country: IT (occurrence: IT)
  Receive Date: 20190523
  Receipt Date: 20190603
  Transmission Date: 20190711
  Serious: Yes (Life-Threatening, Hospitalization, Other)
  Sender: FDA-Public Use
  Company Number: IT-MYLANLABS-2019M1047789

PATIENT
  Age: 20 Year
  Sex: Male

DRUGS (15)
  1. CARVEDILOL. [Suspect]
     Active Substance: CARVEDILOL
     Indication: ATRIAL FIBRILLATION
     Dosage: UNK
  2. DEFEROXAMINE [Suspect]
     Active Substance: DEFEROXAMINE\DEFEROXAMINE MESYLATE
     Indication: CARDIAC FAILURE
  3. DEFERIPRONE [Suspect]
     Active Substance: DEFERIPRONE
     Indication: CARDIAC FAILURE
     Dosage: 75 MG/KG, QD (MINIMUM THERAPEUTIC DOSAGE)
     Route: 048
  4. DEFERIPRONE [Suspect]
     Active Substance: DEFERIPRONE
     Indication: IRON OVERLOAD
     Dosage: 75 MG/KG, QD
     Route: 048
  5. DEFEROXAMINE [Suspect]
     Active Substance: DEFEROXAMINE\DEFEROXAMINE MESYLATE
     Indication: CHELATION THERAPY
  6. DEFEROXAMINE [Suspect]
     Active Substance: DEFEROXAMINE\DEFEROXAMINE MESYLATE
     Indication: IRON OVERLOAD
  7. DEFERIPRONE [Suspect]
     Active Substance: DEFERIPRONE
     Indication: CHELATION THERAPY
  8. DEFEROXAMINE [Suspect]
     Active Substance: DEFEROXAMINE\DEFEROXAMINE MESYLATE
     Indication: IRON OVERLOAD
     Dosage: UNK (24-HOUR/PER/DAY)
     Route: 042
  9. WARFARIN SODIUM. [Suspect]
     Active Substance: WARFARIN SODIUM
     Indication: CEREBROVASCULAR ACCIDENT
     Dosage: UNK
  10. DEFEROXAMINE [Suspect]
     Active Substance: DEFEROXAMINE\DEFEROXAMINE MESYLATE
     Indication: CEREBROVASCULAR ACCIDENT
  11. DEFEROXAMINE [Suspect]
     Active Substance: DEFEROXAMINE\DEFEROXAMINE MESYLATE
     Indication: ATRIAL FIBRILLATION
  12. DEFERIPRONE [Suspect]
     Active Substance: DEFERIPRONE
     Indication: SALVAGE THERAPY
  13. CARVEDILOL. [Suspect]
     Active Substance: CARVEDILOL
     Indication: CEREBROVASCULAR ACCIDENT
     Dosage: UNINTERRUPTED IV 24-HOUR/PER/DAY
     Route: 042
  14. CARVEDILOL. [Suspect]
     Active Substance: CARVEDILOL
     Indication: EMBOLISM
  15. WARFARIN SODIUM. [Suspect]
     Active Substance: WARFARIN SODIUM
     Indication: EMBOLISM
     Dosage: UNK

REACTIONS (20)
  - Hypophosphataemia [Recovered/Resolved]
  - Drug-induced liver injury [Recovering/Resolving]
  - Depressed level of consciousness [Recovering/Resolving]
  - Beta 2 microglobulin urine increased [Recovered/Resolved]
  - Breath sounds abnormal [Recovering/Resolving]
  - Glycosuria [Recovered/Resolved]
  - Influenza like illness [Recovering/Resolving]
  - Jaundice [Recovering/Resolving]
  - Coagulopathy [Recovering/Resolving]
  - Condition aggravated [Recovering/Resolving]
  - Model for end stage liver disease score abnormal [Recovering/Resolving]
  - Asthenia [Recovering/Resolving]
  - Proteinuria [Recovering/Resolving]
  - Renal tubular disorder [Recovered/Resolved]
  - Hypokalaemia [Recovered/Resolved]
  - Hepatomegaly [Recovering/Resolving]
  - Dehydration [Recovering/Resolving]
  - Electrolyte imbalance [Recovered/Resolved]
  - Pleural effusion [Recovering/Resolving]
  - Gamma-glutamyltransferase increased [Not Recovered/Not Resolved]
